FAERS Safety Report 12634721 (Version 2)
Quarter: 2016Q4

REPORT INFORMATION
  Report Type: Spontaneous
  Country: US (occurrence: US)
  Receive Date: 20160808
  Receipt Date: 20161104
  Transmission Date: 20170207
  Serious: No
  Sender: FDA-Public Use
  Company Number: US-PFIZER INC-2016377800

PATIENT
  Age: 58 Year
  Sex: Male
  Weight: 90.72 kg

DRUGS (12)
  1. XELJANZ [Suspect]
     Active Substance: TOFACITINIB CITRATE
     Dosage: 10 MG, 2X/DAY
     Dates: start: 201605
  2. ACETAMINOPHEN W/HYDROCODONE BITARTRATE [Concomitant]
     Active Substance: ACETAMINOPHEN\HYDROCODONE BITARTRATE
     Dosage: [HYDROCODONE BITARTRATE 10MG]/[PARACETAMOL 325MG] TWO TABLETS DAILY
     Route: 048
     Dates: start: 2010
  3. TRAZODONE [Concomitant]
     Active Substance: TRAZODONE HYDROCHLORIDE
     Indication: SLEEP DISORDER
     Dosage: 150MG ONE TABLET AT BEDTIME
     Route: 048
     Dates: start: 2010
  4. XELJANZ [Suspect]
     Active Substance: TOFACITINIB CITRATE
     Indication: RHEUMATOID ARTHRITIS
     Dosage: 5MG ONE TABLET DAILY
     Route: 048
     Dates: start: 2016, end: 20160801
  5. PREDNISONE. [Concomitant]
     Active Substance: PREDNISONE
     Indication: INFLAMMATION
     Dosage: 5MG ONE TABLET DAILY
     Route: 048
     Dates: start: 2010
  6. METHOTREXATE. [Concomitant]
     Active Substance: METHOTREXATE
     Indication: RHEUMATOID ARTHRITIS
     Dosage: 2.5MG FIVE TABLETS ONCE A WEEK
     Route: 048
     Dates: start: 1998
  7. LYRICA [Concomitant]
     Active Substance: PREGABALIN
     Indication: NEUROPATHY PERIPHERAL
     Dosage: 100 MG, 2X/DAY (100MG ONE CAPSULE TWO TIMES A DAY)
     Route: 048
     Dates: start: 2010
  8. ZOLOFT [Concomitant]
     Active Substance: SERTRALINE HYDROCHLORIDE
     Indication: DEPRESSION
     Dosage: 100MG TWO TABLETS AT BEDTIMES
     Route: 048
     Dates: start: 2010
  9. ALENDRONATE [Concomitant]
     Active Substance: ALENDRONATE SODIUM
     Indication: CALCIUM DEFICIENCY
     Dosage: 70MG ONE TABLET ONCE A WEEK
     Route: 048
     Dates: start: 2014
  10. ACETAMINOPHEN W/HYDROCODONE BITARTRATE [Concomitant]
     Active Substance: ACETAMINOPHEN\HYDROCODONE BITARTRATE
     Indication: PAIN
     Dosage: [HYDROCODONE BITARTRATE 7.5MG]/[PARACETAMOL 325MG] TWO TABLETS DAILY
     Route: 048
  11. OMEPRAZOLE. [Concomitant]
     Active Substance: OMEPRAZOLE
     Indication: ABDOMINAL DISCOMFORT
     Dosage: 20MG ONE CAPSULE DAILY
     Route: 048
     Dates: start: 2014
  12. TRAMADOL. [Concomitant]
     Active Substance: TRAMADOL
     Indication: PAIN
     Dosage: 50MG ONE TO TWO TABLETS EVERY SIX HOURS
     Route: 048
     Dates: start: 2010

REACTIONS (5)
  - Drug dose omission [Recovered/Resolved]
  - Sinusitis [Recovered/Resolved]
  - Myalgia [Recovered/Resolved]
  - Neoplasm [Recovered/Resolved]
  - Intentional product misuse [Recovered/Resolved]

NARRATIVE: CASE EVENT DATE: 201603
